FAERS Safety Report 17588227 (Version 2)
Quarter: 2020Q3

REPORT INFORMATION
  Report Type: Spontaneous
  Country: US (occurrence: US)
  Receive Date: 20200326
  Receipt Date: 20200701
  Transmission Date: 20201102
  Serious: No
  Sender: FDA-Public Use
  Company Number: US-GE HEALTHCARE LIFE SCIENCES-2020CSU000537

PATIENT

DRUGS (2)
  1. INDIUM DTPA IN 111 [Suspect]
     Active Substance: INDIUM IN-111 PENTETATE DISODIUM
     Indication: CISTERNOGRAM
     Dosage: UNK, SINGLE
     Route: 037
     Dates: start: 20200128, end: 20200128
  2. INDIUM DTPA IN 111 [Suspect]
     Active Substance: INDIUM IN-111 PENTETATE DISODIUM
     Indication: PRODUCT USED FOR UNKNOWN INDICATION

REACTIONS (2)
  - No adverse event [Recovered/Resolved]
  - Radioisotope scan abnormal [Recovered/Resolved]

NARRATIVE: CASE EVENT DATE: 20200128
